FAERS Safety Report 7981112-2 (Version None)
Quarter: 2011Q4

REPORT INFORMATION
  Report Type: 
  Country: None (occurrence: None)
  Receive Date: 20111212
  Receipt Date: 20111206
  Transmission Date: 20120403
  Serious: Yes (Death)
  Sender: FDA-Public Use
  Company Number: DSA_48335_2011

PATIENT
  Sex: Male

DRUGS (5)
  1. BUSPAR [Concomitant]
  2. CLONAZEPAM [Concomitant]
  3. LEXAPRO [Concomitant]
  4. XENAZINE [Suspect]
     Indication: PRODUCT USED FOR UNKNOWN INDICATION
     Dosage: (12.5 MG BID ORAL)
     Route: 048
  5. METOPROLOL TARTRATE [Concomitant]

REACTIONS (1)
  - DEATH [None]
